FAERS Safety Report 5055477-8 (Version None)
Quarter: 2006Q3

REPORT INFORMATION
  Report Type: 
  Country: None (occurrence: None)
  Receive Date: 20060714
  Receipt Date: 20060627
  Transmission Date: 20061208
  Serious: Yes (Other)
  Sender: FDA-Public Use
  Company Number: US200604003211

PATIENT
  Age: 50 Year
  Sex: Male

DRUGS (5)
  1. ALIMTA [Suspect]
     Indication: NON-SMALL CELL LUNG CANCER
  2. GEMZAR(GEMICITABINE HYDROCHLORIDE) VIAL [Suspect]
     Indication: NON-SMALL CELL LUNG CANCER
  3. CYANOCOBALAMIN [Concomitant]
  4. FOLIC ACID [Concomitant]
  5. DECADRON [Concomitant]

REACTIONS (3)
  - DIALYSIS [None]
  - HAEMOLYTIC URAEMIC SYNDROME [None]
  - THROMBOCYTHAEMIA [None]
